APPROVED DRUG PRODUCT: FLUOROMETHOLONE
Active Ingredient: FLUOROMETHOLONE
Strength: 0.1%
Dosage Form/Route: SUSPENSION/DROPS;OPHTHALMIC
Application: A216348 | Product #001 | TE Code: AB
Applicant: AMNEAL EU LTD
Approved: Jan 9, 2024 | RLD: No | RS: No | Type: RX